FAERS Safety Report 17029833 (Version 1)
Quarter: 2019Q4

REPORT INFORMATION
  Report Type: Spontaneous
  Country: US (occurrence: US)
  Receive Date: 20191114
  Receipt Date: 20191114
  Transmission Date: 20200122
  Serious: Yes (Disabling)
  Sender: FDA-Public Use
  Company Number: NVSC2019US033789

PATIENT
  Age: 68 Year
  Sex: Male
  Weight: 67.3 kg

DRUGS (1)
  1. EVEROLIMUS. [Suspect]
     Active Substance: EVEROLIMUS
     Indication: THYROID CANCER METASTATIC
     Dosage: 10 MG
     Route: 048
     Dates: start: 20190729

REACTIONS (3)
  - Peripheral swelling [Unknown]
  - Pain in extremity [Unknown]
  - Radius fracture [Recovering/Resolving]

NARRATIVE: CASE EVENT DATE: 20190809
